FAERS Safety Report 4915072-5 (Version None)
Quarter: 2006Q1

REPORT INFORMATION
  Report Type: 
  Country: None (occurrence: None)
  Receive Date: 20060215
  Receipt Date: 20060215
  Transmission Date: 20060701
  Serious: Yes (Hospitalization)
  Sender: FDA-Public Use
  Company Number: None

PATIENT
  Sex: Female
  Weight: 84.369 kg

DRUGS (1)
  1. FLUORESCEIN [Suspect]
     Indication: EYE OPERATION
     Dosage: IV X1 DOSE
     Route: 042
     Dates: start: 20051213

REACTIONS (1)
  - ASTHENIA [None]
